FAERS Safety Report 19446776 (Version 1)
Quarter: 2021Q2

REPORT INFORMATION
  Report Type: Spontaneous
  Country: US (occurrence: US)
  Receive Date: 20210620
  Receipt Date: 20210620
  Transmission Date: 20210717
  Serious: Yes (Disabling)
  Sender: FDA-Public Use
  Company Number: None

PATIENT
  Age: 44 Year
  Sex: Female
  Weight: 112.5 kg

DRUGS (8)
  1. ARMOUR THYROID [Concomitant]
     Active Substance: THYROID, PORCINE
  2. WHOLE FOOD MULTIVITAMIN [Concomitant]
  3. PAROXETINE. [Concomitant]
     Active Substance: PAROXETINE
  4. OMEGA 3 [Concomitant]
     Active Substance: OMEGA-3 FATTY ACIDS
  5. NP THYROID [Suspect]
     Active Substance: LEVOTHYROXINE\LIOTHYRONINE
     Indication: HYPOTHYROIDISM
     Route: 048
  6. LISINOPRIL?HCTZ [Concomitant]
     Active Substance: HYDROCHLOROTHIAZIDE\LISINOPRIL
  7. MIRTAZIPINE [Concomitant]
     Active Substance: MIRTAZAPINE
  8. PROBIOTIC VEGAN [Concomitant]

REACTIONS (8)
  - Disturbance in attention [None]
  - Abdominal pain upper [None]
  - Recalled product administered [None]
  - Emotional disorder [None]
  - Depressed mood [None]
  - Confusional state [None]
  - Depression [None]
  - Asthenia [None]

NARRATIVE: CASE EVENT DATE: 20210526
